FAERS Safety Report 4808408-7 (Version None)
Quarter: 2005Q4

REPORT INFORMATION
  Report Type: 
  Country: None (occurrence: None)
  Receive Date: 20051025
  Receipt Date: 20051014
  Transmission Date: 20060501
  Serious: Yes (Hospitalization)
  Sender: FDA-Public Use
  Company Number: US-JNJFOC-20051003466

PATIENT
  Sex: Female
  Weight: 90.27 kg

DRUGS (15)
  1. REMICADE [Suspect]
     Indication: RHEUMATOID ARTHRITIS
     Route: 042
  2. PREDNISONE TAB [Concomitant]
     Route: 048
  3. PLAQUENIL [Concomitant]
     Route: 048
  4. ASPIRIN [Concomitant]
     Route: 048
  5. CALCIUM WITH VITAMIN D [Concomitant]
     Route: 048
  6. CALCIUM WITH VITAMIN D [Concomitant]
     Route: 048
  7. CALCIUM WITH VITAMIN D [Concomitant]
     Route: 048
  8. MULTI-VITAMIN [Concomitant]
  9. MULTI-VITAMIN [Concomitant]
  10. MULTI-VITAMIN [Concomitant]
  11. MULTI-VITAMIN [Concomitant]
  12. MULTI-VITAMIN [Concomitant]
  13. MULTI-VITAMIN [Concomitant]
  14. MULTI-VITAMIN [Concomitant]
  15. MULTI-VITAMIN [Concomitant]
     Dosage: DAILY

REACTIONS (1)
  - ENDOMETRIAL CANCER [None]
